FAERS Safety Report 10960057 (Version 1)
Quarter: 2015Q1

REPORT INFORMATION
  Report Type: Spontaneous
  Country: US (occurrence: None)
  Receive Date: 20150326
  Receipt Date: 20150326
  Transmission Date: 20150721
  Serious: Yes (Hospitalization)
  Sender: FDA-Public Use
  Company Number: None

PATIENT
  Age: 27 Year
  Sex: Male
  Weight: 114.75 kg

DRUGS (2)
  1. TAXOL [Suspect]
     Active Substance: PACLITAXEL
     Dates: end: 20150217
  2. CARBOPLATIN. [Suspect]
     Active Substance: CARBOPLATIN
     Dates: end: 20150217

REACTIONS (9)
  - Chills [None]
  - Gastroenteritis viral [None]
  - Vomiting [None]
  - Pyrexia [None]
  - Nausea [None]
  - Gastrointestinal toxicity [None]
  - Productive cough [None]
  - Diarrhoea [None]
  - Pain [None]

NARRATIVE: CASE EVENT DATE: 20150312
